FAERS Safety Report 9019781 (Version 1)
Quarter: 2013Q1

REPORT INFORMATION
  Report Type: Report from Study
  Country: SZ (occurrence: SZ)
  Receive Date: 20130118
  Receipt Date: 20130118
  Transmission Date: 20140127
  Serious: Yes (Hospitalization)
  Sender: FDA-Public Use
  Company Number: SZ-ROCHE-1180776

PATIENT
  Age: 55 None
  Sex: Female

DRUGS (2)
  1. BEVACIZUMAB [Suspect]
     Indication: BREAST CANCER
     Dosage: DATE OF LAST DOSE ADMINISTERED PRIOR TO SAE 27/DEC/2012
     Route: 065
     Dates: start: 20120919
  2. PACLITAXEL [Suspect]
     Indication: BREAST CANCER
     Dosage: DATE OF LAST DOSE ADMINISTERED PRIOR TO SAE 27/DEC/2012
     Route: 065
     Dates: start: 20120919

REACTIONS (1)
  - Hepatic necrosis [Unknown]
